FAERS Safety Report 24044654 (Version 1)
Quarter: 2024Q3

REPORT INFORMATION
  Report Type: Spontaneous
  Country: US (occurrence: US)
  Receive Date: 20240703
  Receipt Date: 20240703
  Transmission Date: 20241016
  Serious: Yes (Other)
  Sender: NOVITIUM PHARMA
  Company Number: US-NOVITIUMPHARMA-2024USNVP01144

PATIENT
  Age: 68 Year
  Sex: Male

DRUGS (7)
  1. PREDNISONE [Suspect]
     Active Substance: PREDNISONE
     Indication: Immunosuppression
     Dosage: HIGH DOSE
  2. PREDNISONE [Suspect]
     Active Substance: PREDNISONE
     Dosage: MAINTAINED ON 7-10MG DAILY
  3. METHOTREXATE [Concomitant]
     Active Substance: METHOTREXATE
     Indication: Immunosuppression
  4. COLCHICINE [Concomitant]
     Active Substance: COLCHICINE
     Indication: Immunosuppression
  5. COLCHICINE [Concomitant]
     Active Substance: COLCHICINE
     Indication: Pericarditis
  6. SULFASALAZINE [Concomitant]
     Active Substance: SULFASALAZINE
     Indication: Immunosuppression
  7. CANAKINUMAB [Concomitant]
     Active Substance: CANAKINUMAB
     Indication: Immunosuppression
     Route: 058

REACTIONS (1)
  - Whipple^s disease [Recovering/Resolving]
